FAERS Safety Report 20300053 (Version 1)
Quarter: 2022Q1

REPORT INFORMATION
  Report Type: Spontaneous
  Country: IR (occurrence: IR)
  Receive Date: 20220105
  Receipt Date: 20220105
  Transmission Date: 20220423
  Serious: Yes (Other)
  Sender: FDA-Public Use
  Company Number: IR-GLAXOSMITHKLINE-IRCH2021GSK092923

PATIENT
  Age: 26 Year
  Sex: Male

DRUGS (9)
  1. TERBINAFINE [Suspect]
     Active Substance: TERBINAFINE
     Indication: Pruritus
     Dosage: 250 MG PER DAY
  2. TERBINAFINE [Suspect]
     Active Substance: TERBINAFINE
     Indication: Scab
  3. TERBINAFINE [Suspect]
     Active Substance: TERBINAFINE
     Indication: Skin lesion
  4. FLUCONAZOLE [Suspect]
     Active Substance: FLUCONAZOLE
     Indication: Pruritus
     Dosage: 150 MG PER DAY
  5. FLUCONAZOLE [Suspect]
     Active Substance: FLUCONAZOLE
     Indication: Scab
  6. FLUCONAZOLE [Suspect]
     Active Substance: FLUCONAZOLE
     Indication: Skin lesion
  7. CLOTRIMAZOLE [Suspect]
     Active Substance: CLOTRIMAZOLE
     Indication: Pruritus
     Dosage: UNK
     Route: 061
  8. CLOTRIMAZOLE [Suspect]
     Active Substance: CLOTRIMAZOLE
     Indication: Scab
  9. CLOTRIMAZOLE [Suspect]
     Active Substance: CLOTRIMAZOLE
     Indication: Skin lesion

REACTIONS (2)
  - Pathogen resistance [Unknown]
  - Drug resistance [Unknown]
